FAERS Safety Report 7253182 (Version 2)
Quarter: 2014Q1

REPORT INFORMATION
  Report Type: Spontaneous
  Country: US (occurrence: None)
  Receive Date: 20100113
  Receipt Date: 20140220
  Transmission Date: 20141002
  Serious: Yes (Other)
  Sender: FDA-Public Use
  Company Number: 2010S1000100

PATIENT
  Age: 51 Year
  Sex: Female
  Weight: 112.95 kg

DRUGS (8)
  1. FLEET PHOSPHO-SODA ORAL SALINE LAXATIVE, GINGER-LEMON FLAVOR [Suspect]
     Indication: COLONOSCOPY
     Dosage: 45 ML, 1 IN 24 HOURS, ORAL
     Route: 048
     Dates: start: 20081022, end: 20081022
  2. DULCOLAX (BISACODYL) [Suspect]
     Indication: COLONOSCOPY
     Dosage: 3 DOSAGE FORMS, 1 IN 24 HOURS, ORAL
     Route: 048
     Dates: start: 20081022, end: 20081022
  3. TRICOR (FENOFIBRATE) [Concomitant]
  4. ACTOS (PIOGLITAZONE HYDROCHLORIDE) [Concomitant]
  5. PROTEGRA (ASCORBIC ACID, TOCOPHERYL ACETATE, BETACAROTENE, MANGANESE, COPPER, ZINC, SELENIUM)? [Concomitant]
  6. VITAMIN C (ASCORBIC ACID) [Concomitant]
  7. FISH OIL (FISH OIL) [Concomitant]
  8. COUMADIN (WARFARIN SODIUM) [Concomitant]

REACTIONS (6)
  - Renal failure chronic [None]
  - Hyperparathyroidism [None]
  - Anaemia [None]
  - Kidney small [None]
  - Hepatic steatosis [None]
  - Nephrogenic anaemia [None]
